FAERS Safety Report 19650118 (Version 1)
Quarter: 2021Q3

REPORT INFORMATION
  Report Type: Spontaneous
  Country: US (occurrence: US)
  Receive Date: 20210802
  Receipt Date: 20210802
  Transmission Date: 20211014
  Serious: Yes (Hospitalization)
  Sender: FDA-Public Use
  Company Number: None

PATIENT
  Age: 80 Year
  Sex: Male
  Weight: 98.1 kg

DRUGS (16)
  1. PROAIR HFA [Concomitant]
     Active Substance: ALBUTEROL SULFATE
  2. METOPROLOL SUCCINATE ER 25MG [Concomitant]
  3. PREDNISONE 2.5MG [Concomitant]
     Active Substance: PREDNISONE
  4. ABIRATERONE. [Suspect]
     Active Substance: ABIRATERONE ACETATE
     Indication: PROSTATE CANCER
     Route: 048
     Dates: start: 20210316
  5. FUROSEMIDE 40MG [Concomitant]
     Active Substance: FUROSEMIDE
  6. CENTRUM SILVER [Concomitant]
     Active Substance: MINERALS\VITAMINS
  7. OLMESARTAN 40MG [Concomitant]
     Active Substance: OLMESARTAN
  8. TAMSULOSIN 0.4MG [Concomitant]
     Active Substance: TAMSULOSIN
  9. ASPIRIN 81MG [Concomitant]
     Active Substance: ASPIRIN
  10. TRELEGY ELLIPTA 100?62.5?25MCG [Concomitant]
  11. OZEMPIC 2MG/1.5ML [Concomitant]
  12. GLIPIZIDE ER [Concomitant]
     Active Substance: GLIPIZIDE
  13. PRADAXA [Concomitant]
     Active Substance: DABIGATRAN ETEXILATE MESYLATE
  14. FERROUS SULFATE 325MG [Concomitant]
     Active Substance: FERROUS SULFATE
  15. BENICAR [Concomitant]
     Active Substance: OLMESARTAN MEDOXOMIL
  16. MULTIVITAMIN [Concomitant]
     Active Substance: VITAMINS

REACTIONS (2)
  - Haemoglobin decreased [None]
  - Swelling [None]

NARRATIVE: CASE EVENT DATE: 20210802
